FAERS Safety Report 6006285-2 (Version None)
Quarter: 2008Q4

REPORT INFORMATION
  Report Type: 
  Country: None (occurrence: None)
  Receive Date: 20081216
  Receipt Date: 20081216
  Transmission Date: 20090506
  Serious: Yes (Other)
  Sender: FDA-Public Use
  Company Number: None

PATIENT
  Age: 71 Year
  Sex: Female
  Weight: 47.6277 kg

DRUGS (1)
  1. HYDROXYUREA [Suspect]
     Indication: THROMBOCYTOPENIA
     Dosage: 500MG 1QD PO
     Route: 048
     Dates: start: 20080303, end: 20080508

REACTIONS (2)
  - PLATELET COUNT INCREASED [None]
  - PRODUCT QUALITY ISSUE [None]
